FAERS Safety Report 8045174-9 (Version None)
Quarter: 2012Q1

REPORT INFORMATION
  Report Type: 
  Country: None (occurrence: None)
  Receive Date: 20120113
  Receipt Date: 20110902
  Transmission Date: 20120608
  Serious: Yes (Life-Threatening, Other)
  Sender: FDA-Public Use
  Company Number: US-ASTRAZENECA-2010SE36464

PATIENT
  Sex: Female

DRUGS (4)
  1. SEROQUEL XR [Suspect]
     Route: 048
  2. SEROQUEL XR [Suspect]
     Indication: SCHIZOAFFECTIVE DISORDER
     Route: 048
  3. SEROQUEL XR [Suspect]
     Route: 048
  4. SEROQUEL XR [Suspect]
     Route: 048

REACTIONS (12)
  - THERAPY CESSATION [None]
  - PARAESTHESIA [None]
  - TREMOR [None]
  - SUICIDE ATTEMPT [None]
  - PARANOIA [None]
  - DIARRHOEA [None]
  - COUGH [None]
  - RESPIRATORY TRACT INFECTION [None]
  - HAEMATEMESIS [None]
  - RASH [None]
  - MENOPAUSE [None]
  - THERAPEUTIC RESPONSE UNEXPECTED [None]
